FAERS Safety Report 4700817-X (Version None)
Quarter: 2005Q2

REPORT INFORMATION
  Report Type: 
  Country: None (occurrence: None)
  Receive Date: 20050624
  Receipt Date: 20041202
  Transmission Date: 20051028
  Serious: Yes (Hospitalization)
  Sender: FDA-Public Use
  Company Number: 387930

PATIENT
  Age: 60 Year
  Sex: Male
  Weight: 77.5 kg

DRUGS (3)
  1. CAPECITABINE (CAPECITABINE) [Suspect]
     Indication: COLORECTAL CANCER METASTATIC
     Dosage: 1150 MG 2 PER DAY ORAL
     Route: 048
     Dates: start: 20030905, end: 20031106
  2. ERLOTINIB (ERLOTINIB) [Suspect]
     Indication: COLORECTAL CANCER METASTATIC
     Dosage: 150 MG DAILY ORAL
     Route: 048
     Dates: start: 20030905, end: 20031113
  3. OXALIPLATIN (AS COMPARATOR) (OXALIPLATIN) [Suspect]
     Indication: COLORECTAL CANCER METASTATIC
     Dosage: 1 PER 3 WEEK INTRAVENOUS
     Route: 042
     Dates: start: 20030905, end: 20031023

REACTIONS (1)
  - ENTERITIS [None]
